FAERS Safety Report 18625586 (Version 6)
Quarter: 2021Q1

REPORT INFORMATION
  Report Type: Spontaneous
  Country: CO (occurrence: CO)
  Receive Date: 20201216
  Receipt Date: 20210301
  Transmission Date: 20210419
  Serious: Yes (Other)
  Sender: FDA-Public Use
  Company Number: CO-PFIZER INC-2020494473

PATIENT
  Age: 51 Year
  Sex: Female

DRUGS (2)
  1. SOMAVERT [Suspect]
     Active Substance: PEGVISOMANT
     Dosage: 10 MG
     Route: 058
     Dates: start: 2014
  2. SOMAVERT [Suspect]
     Active Substance: PEGVISOMANT
     Indication: ACROMEGALY
     Dosage: 10 MG
     Route: 058
     Dates: start: 2013, end: 20201114

REACTIONS (14)
  - Abnormal organ growth [Unknown]
  - Dry skin [Unknown]
  - Blood glucose increased [Unknown]
  - Brain neoplasm [Recovered/Resolved]
  - Nasal inflammation [Unknown]
  - Nasal oedema [Unknown]
  - Skin hypertrophy [Unknown]
  - Anxiety [Unknown]
  - Depressed mood [Unknown]
  - Illness [Unknown]
  - Hormone level abnormal [Unknown]
  - Stress [Unknown]
  - Swelling face [Unknown]
  - Facial discomfort [Unknown]

NARRATIVE: CASE EVENT DATE: 202101
